FAERS Safety Report 10039998 (Version 2)
Quarter: 2014Q2

REPORT INFORMATION
  Report Type: Spontaneous
  Country: US (occurrence: US)
  Receive Date: 20140326
  Receipt Date: 20140402
  Transmission Date: 20141212
  Serious: No
  Sender: FDA-Public Use
  Company Number: US-009507513-1403CAN012094

PATIENT
  Sex: Male

DRUGS (1)
  1. AERIUS DUAL ACTION 12 HOUR [Suspect]
     Indication: PRODUCT USED FOR UNKNOWN INDICATION
     Dosage: 1 TAB/DAY
     Route: 048

REACTIONS (1)
  - Drug ineffective [Unknown]
